FAERS Safety Report 7769586-3 (Version None)
Quarter: 2011Q3

REPORT INFORMATION
  Report Type: 
  Country: None (occurrence: None)
  Receive Date: 20110922
  Receipt Date: 20110414
  Transmission Date: 20111222
  Serious: No
  Sender: FDA-Public Use
  Company Number: US-ASTRAZENECA-2011SE21554

PATIENT
  Age: 65 Year
  Sex: Female

DRUGS (6)
  1. SEROQUEL XR [Suspect]
     Indication: MAJOR DEPRESSION
     Route: 048
  2. SEROQUEL XR [Suspect]
     Route: 048
  3. SEROQUEL XR [Suspect]
     Route: 048
  4. PARNATE [Concomitant]
  5. XANAX [Concomitant]
  6. SEROQUEL XR [Suspect]
     Route: 048

REACTIONS (2)
  - BRADYPHRENIA [None]
  - HYPOAESTHESIA [None]
